FAERS Safety Report 15986648 (Version 3)
Quarter: 2019Q2

REPORT INFORMATION
  Report Type: Spontaneous
  Country: CH (occurrence: CH)
  Receive Date: 20190220
  Receipt Date: 20190425
  Transmission Date: 20190711
  Serious: Yes (Other)
  Sender: FDA-Public Use
  Company Number: CH-SEATTLE GENETICS-2018SGN02661

PATIENT
  Sex: Female
  Weight: 51 kg

DRUGS (1)
  1. ADCETRIS [Suspect]
     Active Substance: BRENTUXIMAB VEDOTIN
     Indication: B-CELL LYMPHOMA
     Dosage: 92 MILLIGRAM
     Route: 065
     Dates: start: 20180913, end: 20181026

REACTIONS (2)
  - Disease progression [Unknown]
  - Off label use [Unknown]
